FAERS Safety Report 20841698 (Version 1)
Quarter: 2022Q2

REPORT INFORMATION
  Report Type: Other
  Country: US (occurrence: None)
  Receive Date: 20220518
  Receipt Date: 20220518
  Transmission Date: 20220720
  Serious: Yes (Other)
  Sender: FDA-Public Use
  Company Number: US-ROCHE-2973816

PATIENT
  Age: 63 Year
  Sex: Female
  Weight: 88.530 kg

DRUGS (30)
  1. OCREVUS [Suspect]
     Active Substance: OCRELIZUMAB
     Indication: Progressive multiple sclerosis
     Dosage: HALF-DOSES 2 WEEKS APART
     Route: 037
     Dates: start: 202003, end: 202004
  2. OCREVUS [Suspect]
     Active Substance: OCRELIZUMAB
     Indication: Relapsing multiple sclerosis
  3. VALIUM [Suspect]
     Active Substance: DIAZEPAM
     Indication: Seizure
     Route: 048
  4. VALIUM [Suspect]
     Active Substance: DIAZEPAM
     Indication: Multiple sclerosis
  5. GABAPENTIN [Concomitant]
     Active Substance: GABAPENTIN
     Indication: Neuralgia
     Dosage: 350 MG X 2 4 TIMES DAILY (TOTAL 2800 MG DAILY)
     Route: 048
  6. BUTALBITAL [Concomitant]
     Active Substance: BUTALBITAL
     Indication: Migraine
     Route: 048
  7. SOMA [Concomitant]
     Active Substance: CARISOPRODOL
     Route: 048
  8. DICYCLOMINE [Concomitant]
     Active Substance: DICYCLOMINE HYDROCHLORIDE
     Route: 048
  9. LASIX [Concomitant]
     Active Substance: FUROSEMIDE
     Dosage: TAKES 2 PILLS EVERY MORNING
     Route: 048
  10. OXYBUTYNIN [Concomitant]
     Active Substance: OXYBUTYNIN
  11. DANDELION ROOT [Concomitant]
     Route: 048
  12. HERBALS\TURMERIC [Concomitant]
     Active Substance: HERBALS\TURMERIC
     Dosage: + GINGERROOT 140 MG+ BLACK PEPPER EXTRACT 5 MG
     Route: 048
  13. POTASSIUM [Concomitant]
     Active Substance: POTASSIUM
     Indication: Blood potassium decreased
     Route: 048
  14. MAGNESIUM [Concomitant]
     Active Substance: MAGNESIUM
     Indication: Blood magnesium decreased
     Dosage: 100% CHELATED, HIGH ABSORPTION
     Route: 048
  15. ERGOCALCIFEROL [Concomitant]
     Active Substance: ERGOCALCIFEROL
     Route: 048
  16. OATSTRAW [Concomitant]
     Route: 048
  17. SAW PALMETTO BERRY [Concomitant]
     Indication: Weight decreased
     Route: 048
  18. VISICLEAR [Concomitant]
     Route: 048
  19. ECHINACEA + GOLDENSEAL [Concomitant]
     Dosage: 225 MG/225 MG
     Route: 048
  20. BIOTIN [Concomitant]
     Active Substance: BIOTIN
     Route: 048
  21. DIETARY SUPPLEMENT\HERBALS\MILK THISTLE [Concomitant]
     Active Substance: DIETARY SUPPLEMENT\HERBALS\MILK THISTLE
     Route: 048
  22. HERBALS [Concomitant]
     Active Substance: HERBALS
     Route: 048
  23. MENAQUINONE 6 [Concomitant]
     Active Substance: MENAQUINONE 6
     Route: 048
  24. FENUGREEK SEED [Concomitant]
     Active Substance: FENUGREEK SEED
     Indication: Hypersensitivity
     Route: 048
  25. VALERIAN [Concomitant]
     Active Substance: VALERIAN
     Dosage: 2 CAPSULES DAILY
     Route: 048
  26. MULLEIN [Concomitant]
     Route: 048
  27. GINKGO [Concomitant]
     Active Substance: GINKGO
     Route: 048
  28. ACIDOPHILUS [Concomitant]
     Active Substance: LACTOBACILLUS ACIDOPHILUS
     Route: 048
  29. DEMEROL [Concomitant]
     Active Substance: MEPERIDINE HYDROCHLORIDE
  30. SOLU-MEDROL [Concomitant]
     Active Substance: METHYLPREDNISOLONE SODIUM SUCCINATE

REACTIONS (8)
  - Off label use [Unknown]
  - Colitis microscopic [Not Recovered/Not Resolved]
  - Dysphagia [Not Recovered/Not Resolved]
  - Choking [Not Recovered/Not Resolved]
  - Irritable bowel syndrome [Not Recovered/Not Resolved]
  - Headache [Not Recovered/Not Resolved]
  - Fall [Unknown]
  - Contusion [Recovered/Resolved]

NARRATIVE: CASE EVENT DATE: 20200301
